FAERS Safety Report 15190457 (Version 5)
Quarter: 2018Q3

REPORT INFORMATION
  Report Type: Report from Study
  Country: BR (occurrence: BR)
  Receive Date: 20180724
  Receipt Date: 20180914
  Transmission Date: 20181010
  Serious: Yes (Hospitalization, Other)
  Sender: FDA-Public Use
  Company Number: BR-SAKK-2018SA182710AA

PATIENT
  Age: 33 Year
  Sex: Female
  Weight: 60 kg

DRUGS (2)
  1. ALEMTUZUMAB [Suspect]
     Active Substance: ALEMTUZUMAB
     Indication: MULTIPLE SCLEROSIS
     Dosage: 3 DF
     Route: 041
     Dates: start: 20160822
  2. BACLOFEN. [Concomitant]
     Active Substance: BACLOFEN

REACTIONS (20)
  - Activated partial thromboplastin time prolonged [Unknown]
  - Coagulation factor VIII level abnormal [Unknown]
  - Multiple sclerosis [Recovering/Resolving]
  - Induration [Unknown]
  - Muscle spasms [Unknown]
  - Localised oedema [Unknown]
  - Factor VIII deficiency [Not Recovered/Not Resolved]
  - Antibody test abnormal [Not Recovered/Not Resolved]
  - Swelling [Recovering/Resolving]
  - Pain in extremity [Unknown]
  - Anaemia [Not Recovered/Not Resolved]
  - Tenderness [Unknown]
  - Arthralgia [Not Recovered/Not Resolved]
  - Ecchymosis [Unknown]
  - Laboratory test abnormal [Not Recovered/Not Resolved]
  - Contusion [Recovering/Resolving]
  - Oedema [Not Recovered/Not Resolved]
  - Pain [Recovering/Resolving]
  - Vitiligo [Unknown]
  - Laboratory test abnormal [Recovered/Resolved]

NARRATIVE: CASE EVENT DATE: 201802
